APPROVED DRUG PRODUCT: ERYTHROMYCIN ETHYLSUCCINATE AND SULFISOXAZOLE ACETYL
Active Ingredient: ERYTHROMYCIN ETHYLSUCCINATE; SULFISOXAZOLE ACETYL
Strength: EQ 200MG BASE/5ML;EQ 600MG BASE/5ML
Dosage Form/Route: GRANULE;ORAL
Application: A062759 | Product #001
Applicant: BARR LABORATORIES INC
Approved: May 20, 1988 | RLD: No | RS: No | Type: DISCN